FAERS Safety Report 25354438 (Version 1)
Quarter: 2025Q2

REPORT INFORMATION
  Report Type: Spontaneous
  Country: FR (occurrence: FR)
  Receive Date: 20250523
  Receipt Date: 20250523
  Transmission Date: 20250716
  Serious: Yes (Hospitalization, Other)
  Sender: REGENERON
  Company Number: FR-REGENERON PHARMACEUTICALS, INC.-2025-085249

PATIENT

DRUGS (1)
  1. LIBTAYO [Suspect]
     Active Substance: CEMIPLIMAB-RWLC
     Indication: Squamous cell carcinoma of skin

REACTIONS (3)
  - Neurotoxicity [Unknown]
  - Myositis [Unknown]
  - Myocarditis [Unknown]
